FAERS Safety Report 4567755-7 (Version None)
Quarter: 2005Q1

REPORT INFORMATION
  Report Type: 
  Country: None (occurrence: None)
  Receive Date: 20050125
  Receipt Date: 20050125
  Transmission Date: 20050727
  Serious: Yes (Disabling)
  Sender: FDA-Public Use
  Company Number: None

PATIENT
  Age: 49 Year
  Sex: Male
  Weight: 72.5755 kg

DRUGS (2)
  1. VIOXX [Suspect]
     Indication: ARTHRITIS
     Dosage: TAKE 1 TABLET DAILY WITH FOOD
     Dates: start: 20030523
  2. BEXTRA [Suspect]
     Dosage: TAKE 1 TABLET DAILY WITH FOOD
     Dates: start: 20040219

REACTIONS (7)
  - ABDOMINAL PAIN [None]
  - FATIGUE [None]
  - HAEMATOCHEZIA [None]
  - JAUNDICE [None]
  - OCULAR ICTERUS [None]
  - PRURITUS [None]
  - RASH [None]
